FAERS Safety Report 5763042-X (Version None)
Quarter: 2008Q2

REPORT INFORMATION
  Report Type: 
  Country: None (occurrence: None)
  Receive Date: 20080609
  Receipt Date: 20080605
  Transmission Date: 20081010
  Serious: Yes (Death, Other)
  Sender: FDA-Public Use
  Company Number: MX-ABBOTT-08P-107-0455076-00

PATIENT
  Sex: Male

DRUGS (1)
  1. KALETRA [Suspect]
     Indication: HIV INFECTION
     Route: 048

REACTIONS (6)
  - ASPIRATION [None]
  - CARDIOPULMONARY FAILURE [None]
  - EPISTAXIS [None]
  - KAPOSI'S SARCOMA [None]
  - MOUTH HAEMORRHAGE [None]
  - UPPER GASTROINTESTINAL HAEMORRHAGE [None]
